FAERS Safety Report 17141734 (Version 1)
Quarter: 2019Q4

REPORT INFORMATION
  Report Type: Spontaneous
  Country: AT (occurrence: AT)
  Receive Date: 20191211
  Receipt Date: 20191211
  Transmission Date: 20200122
  Serious: Yes (Hospitalization, Other)
  Sender: FDA-Public Use
  Company Number: AT-GLAXOSMITHKLINE-AT2019GSK219544

PATIENT
  Age: 22 Year
  Sex: Male
  Weight: 90 kg

DRUGS (2)
  1. TRIAMTERENE/HYDROCHLOROTHIAZIDE [Suspect]
     Active Substance: HYDROCHLOROTHIAZIDE\TRIAMTERENE
     Indication: PRODUCT USED FOR UNKNOWN INDICATION
     Dosage: UNK (175MG TRIAMTERENE AND 87.5MG HCTZ)
  2. TRIAMTERENE/HYDROCHLOROTHIAZIDE [Interacting]
     Active Substance: HYDROCHLOROTHIAZIDE\TRIAMTERENE
     Dosage: UNK (25MG TRIAMTERENE AND 12.52MG HCTZ)

REACTIONS (20)
  - Muscle spasms [Recovered/Resolved]
  - Electrocardiogram QT prolonged [Recovered/Resolved]
  - Intentional product misuse [Unknown]
  - Electrolyte imbalance [Recovered/Resolved]
  - Blood creatine phosphokinase increased [Not Recovered/Not Resolved]
  - Hypertension [Unknown]
  - Muscular weakness [Recovered/Resolved]
  - Hypokalaemia [Recovered/Resolved]
  - Quadriparesis [Recovered/Resolved]
  - Polycythaemia [Recovered/Resolved]
  - Bladder dysfunction [Recovered/Resolved]
  - Paralysis [Unknown]
  - Urinary retention [Recovered/Resolved]
  - Aspartate aminotransferase increased [Recovered/Resolved]
  - Myopathy [Unknown]
  - Drug interaction [Unknown]
  - Sensory disturbance [Recovered/Resolved]
  - Self-medication [Unknown]
  - Alanine aminotransferase increased [Recovered/Resolved]
  - Hyperglycaemia [Recovered/Resolved]
